FAERS Safety Report 8199031-8 (Version None)
Quarter: 2012Q1

REPORT INFORMATION
  Report Type: 
  Country: None (occurrence: None)
  Receive Date: 20120309
  Receipt Date: 20120305
  Transmission Date: 20120608
  Serious: Yes (Hospitalization)
  Sender: FDA-Public Use
  Company Number: BR-GLAXOSMITHKLINE-A0938040A

PATIENT
  Sex: Female

DRUGS (2)
  1. PROMACTA [Suspect]
     Indication: IDIOPATHIC THROMBOCYTOPENIC PURPURA
     Route: 048
  2. CORTISONE ACETATE [Concomitant]

REACTIONS (6)
  - THROMBOSIS [None]
  - THROMBOCYTOSIS [None]
  - PLATELET COUNT DECREASED [None]
  - BLINDNESS UNILATERAL [None]
  - THROMBOCYTOPENIA [None]
  - PLATELET COUNT INCREASED [None]
